FAERS Safety Report 9753397 (Version 1)
Quarter: 2013Q4

REPORT INFORMATION
  Report Type: Spontaneous
  Country: US (occurrence: US)
  Receive Date: 20131213
  Receipt Date: 20131213
  Transmission Date: 20140711
  Serious: No
  Sender: FDA-Public Use
  Company Number: US-TEVA-406466USA

PATIENT
  Age: 25 Year
  Sex: Female
  Weight: 124.85 kg

DRUGS (4)
  1. PARAGARD 380A [Suspect]
     Indication: CONTRACEPTION
     Route: 015
     Dates: start: 20121024
  2. UNKNOWNN [Concomitant]
     Indication: HYPERTENSION
  3. NEURONTIN [Concomitant]
     Indication: NERVE INJURY
  4. DIUREX [Concomitant]
     Indication: DIURETIC THERAPY

REACTIONS (1)
  - Menstruation delayed [Not Recovered/Not Resolved]
